FAERS Safety Report 4361049-0 (Version None)
Quarter: 2004Q2

REPORT INFORMATION
  Report Type: 
  Country: None (occurrence: None)
  Receive Date: 20040519
  Receipt Date: 20040519
  Transmission Date: 20050107
  Serious: No
  Sender: FDA-Public Use
  Company Number: None

PATIENT
  Sex: Male
  Weight: 59 kg

DRUGS (1)
  1. STRATTERA [Suspect]
     Indication: ATTENTION DEFICIT/HYPERACTIVITY DISORDER
     Dosage: 40 MG PO BID
     Route: 048
     Dates: start: 20040201, end: 20040330

REACTIONS (2)
  - CARDIOMEGALY [None]
  - DYSPNOEA EXERTIONAL [None]
